FAERS Safety Report 4464865-X (Version None)
Quarter: 2004Q4

REPORT INFORMATION
  Report Type: 
  Country: None (occurrence: None)
  Receive Date: 20041004
  Receipt Date: 20031215
  Transmission Date: 20050328
  Serious: No
  Sender: FDA-Public Use
  Company Number: 356706

PATIENT
  Age: 84 Year
  Sex: Male

DRUGS (2)
  1. COREG [Suspect]
     Dosage: 3.125MG PER DAY
     Route: 048
     Dates: start: 20031212
  2. BLOOD PRESSURE MEDICATION [Concomitant]

REACTIONS (1)
  - DIARRHOEA [None]
